FAERS Safety Report 25007556 (Version 5)
Quarter: 2025Q3

REPORT INFORMATION
  Report Type: Report from Study
  Country: CA (occurrence: CA)
  Receive Date: 20250225
  Receipt Date: 20250922
  Transmission Date: 20251020
  Serious: Yes (Other)
  Sender: TAKEDA
  Company Number: CA-TAKEDA-2025TUS018522

PATIENT
  Age: 26 Year
  Sex: Female
  Weight: 65.77 kg

DRUGS (9)
  1. VEDOLIZUMAB [Suspect]
     Active Substance: VEDOLIZUMAB
     Indication: Colitis ulcerative
  2. VEDOLIZUMAB [Suspect]
     Active Substance: VEDOLIZUMAB
  3. VEDOLIZUMAB [Suspect]
     Active Substance: VEDOLIZUMAB
     Dosage: 300 MILLIGRAM, Q4WEEKS
     Dates: start: 20250916
  4. PENTASA [Concomitant]
     Active Substance: MESALAMINE
     Indication: Colitis ulcerative
     Dosage: UNK UNK, QD
     Dates: start: 20240726
  5. PENTASA [Concomitant]
     Active Substance: MESALAMINE
     Dosage: 4 GRAM, QD
  6. PREDNISONE [Concomitant]
     Active Substance: PREDNISONE
     Indication: Colitis ulcerative
  7. APIXABAN [Concomitant]
     Active Substance: APIXABAN
     Dosage: 2.5 MILLIGRAM, BID
  8. Cortiment [Concomitant]
  9. KEPPRA [Concomitant]
     Active Substance: LEVETIRACETAM
     Dosage: 500 MILLIGRAM, BID

REACTIONS (9)
  - Colitis [Recovering/Resolving]
  - Proctitis ulcerative [Unknown]
  - Haematochezia [Unknown]
  - Gastrointestinal disorder [Recovering/Resolving]
  - Irritable bowel syndrome [Unknown]
  - Impaired work ability [Unknown]
  - Frequent bowel movements [Unknown]
  - Social problem [Unknown]
  - Off label use [Unknown]

NARRATIVE: CASE EVENT DATE: 20250916
